FAERS Safety Report 23179524 (Version 1)
Quarter: 2023Q4

REPORT INFORMATION
  Report Type: Spontaneous
  Country: GB (occurrence: GB)
  Receive Date: 20231114
  Receipt Date: 20231114
  Transmission Date: 20240110
  Serious: Yes (Congenital Anomaly, Other)
  Sender: FDA-Public Use
  Company Number: GB-MHRA-ADR 20220087

PATIENT
  Age: 21 Week
  Weight: 0.117 kg

DRUGS (3)
  1. ENALAPRIL [Suspect]
     Active Substance: ENALAPRIL
     Indication: Hypertension
     Dosage: 10 MILLIGRAM, ONCE A DAY
     Route: 064
     Dates: start: 200702, end: 200704
  2. LABETALOL [Concomitant]
     Active Substance: LABETALOL\LABETALOL HYDROCHLORIDE
     Indication: Hypertension
     Dosage: 100 MG,UNK,
     Route: 064
     Dates: start: 20070626
  3. METHYLDOPA [Concomitant]
     Active Substance: METHYLDOPA
     Indication: Hypertension
     Dosage: UNK UNK,UNK,
     Route: 064
     Dates: start: 20070417

REACTIONS (7)
  - Foetal cardiac disorder [Unknown]
  - Foetal growth restriction [Unknown]
  - Multiple congenital abnormalities [Unknown]
  - Pulmonary malformation [Unknown]
  - Oligohydramnios [Unknown]
  - Placental disorder [Unknown]
  - Exposure during pregnancy [Unknown]
